FAERS Safety Report 6724738-6 (Version None)
Quarter: 2010Q2

REPORT INFORMATION
  Report Type: 
  Country: None (occurrence: None)
  Receive Date: 20100511
  Receipt Date: 20100426
  Transmission Date: 20101027
  Serious: Yes (Other)
  Sender: FDA-Public Use
  Company Number: AUR-APU-2010-01180

PATIENT
  Sex: Female

DRUGS (7)
  1. METFORMIN HYDROCHLORIDE [Suspect]
     Dosage: 500MG, TWICE DAILY
     Dates: start: 20100419
  2. CRESTOR [Concomitant]
  3. CLOR-KON [Concomitant]
  4. LASIX [Concomitant]
  5. CARDIZEM LA [Concomitant]
  6. ACIPHEX [Concomitant]
  7. POTASSIUM CHLORIDE [Concomitant]

REACTIONS (2)
  - OEDEMA PERIPHERAL [None]
  - PRODUCT SUBSTITUTION ISSUE [None]
